FAERS Safety Report 5925763-5 (Version None)
Quarter: 2008Q4

REPORT INFORMATION
  Report Type: 
  Country: None (occurrence: None)
  Receive Date: 20081021
  Receipt Date: 20081010
  Transmission Date: 20090506
  Serious: Yes (Death)
  Sender: FDA-Public Use
  Company Number: JP-SANOFI-SYNTHELABO-A01200809673

PATIENT
  Sex: Male
  Weight: 66 kg

DRUGS (5)
  1. LEUCOVORIN CALCIUM [Concomitant]
     Indication: RECTAL CANCER
     Route: 041
     Dates: start: 20070712, end: 20070712
  2. FLUOROURACIL [Suspect]
     Dosage: 500 MG/BODY=295.9 MG/M2 IN BOLUS THEN 3000 MG/BODY/D1-2=1775.1 MG/M2/D1-2 AS CONTINUOUS INFUSION
     Route: 040
     Dates: start: 20070712, end: 20070712
  3. FLUOROURACIL [Suspect]
     Route: 041
     Dates: start: 20070712, end: 20070713
  4. ELPLAT [Suspect]
     Indication: RECTAL CANCER
     Route: 041
     Dates: start: 20070712, end: 20070712
  5. RED BLOOD CELLS [Concomitant]
     Route: 041
     Dates: start: 20070730, end: 20070730

REACTIONS (1)
  - INTERSTITIAL LUNG DISEASE [None]
